FAERS Safety Report 9549950 (Version 2)
Quarter: 2013Q3

REPORT INFORMATION
  Report Type: Report from Study
  Country: BR (occurrence: BR)
  Receive Date: 20130924
  Receipt Date: 20130924
  Transmission Date: 20140515
  Serious: Yes (Other)
  Sender: FDA-Public Use
  Company Number: ALCN2013BR002015

PATIENT
  Age: 84 Year
  Sex: Female
  Weight: 54 kg

DRUGS (2)
  1. TRAVATAN [Suspect]
     Indication: GLAUCOMA
     Route: 047
     Dates: start: 1998, end: 201212
  2. LACRIFILM [Concomitant]

REACTIONS (5)
  - Diabetes mellitus [Not Recovered/Not Resolved]
  - Neoplasm malignant [Unknown]
  - Cataract [Not Recovered/Not Resolved]
  - Cardiac pacemaker insertion [Recovered/Resolved]
  - Muscular weakness [Not Recovered/Not Resolved]
